FAERS Safety Report 20799297 (Version 1)
Quarter: 2022Q2

REPORT INFORMATION
  Report Type: Spontaneous
  Country: US (occurrence: US)
  Receive Date: 20220508
  Receipt Date: 20220508
  Transmission Date: 20220721
  Serious: No
  Sender: FDA-Public Use
  Company Number: US-JNJFOC-20220500154

PATIENT
  Sex: Female

DRUGS (3)
  1. OPSUMIT [Suspect]
     Active Substance: MACITENTAN
     Indication: Product used for unknown indication
     Route: 048
     Dates: start: 20200528
  2. TYLENOL [Concomitant]
     Active Substance: ACETAMINOPHEN
  3. CODEINE [Concomitant]
     Active Substance: CODEINE

REACTIONS (1)
  - Exostosis [Unknown]
